FAERS Safety Report 19773764 (Version 1)
Quarter: 2021Q3

REPORT INFORMATION
  Report Type: Spontaneous
  Country: SI (occurrence: SI)
  Receive Date: 20210901
  Receipt Date: 20210901
  Transmission Date: 20211014
  Serious: Yes (Death)
  Sender: FDA-Public Use
  Company Number: SI-FRESENIUS KABI-FK202109237

PATIENT
  Age: 46 Year
  Sex: Female

DRUGS (6)
  1. ONDANSETRON (MANUFACTURER UNKNOWN) [Suspect]
     Active Substance: ONDANSETRON
     Indication: ABDOMINAL PAIN
     Route: 050
     Dates: start: 202008
  2. AMOXICILLIN SODIUM/CLAVULANATE POTASSIUM [Suspect]
     Active Substance: AMOXICILLIN\CLAVULANATE POTASSIUM
     Indication: PHARYNGITIS
     Route: 042
  3. ESKETAMINE [Concomitant]
     Active Substance: ESKETAMINE
     Indication: ABDOMINAL PAIN
     Route: 050
     Dates: start: 202008
  4. MORPHINE [Concomitant]
     Active Substance: MORPHINE
     Indication: ABDOMINAL PAIN
     Route: 050
     Dates: start: 202008
  5. LIDOCAINE. [Concomitant]
     Active Substance: LIDOCAINE
     Indication: ABDOMINAL PAIN
     Route: 050
     Dates: start: 202008
  6. DEXAMETHASONE. [Concomitant]
     Active Substance: DEXAMETHASONE
     Indication: ABDOMINAL PAIN
     Route: 050
     Dates: start: 202008

REACTIONS (3)
  - Sepsis [Fatal]
  - Stevens-Johnson syndrome [Fatal]
  - Hepatic failure [Fatal]
